FAERS Safety Report 4648855-X (Version None)
Quarter: 2005Q2

REPORT INFORMATION
  Report Type: 
  Country: None (occurrence: None)
  Receive Date: 20050429
  Receipt Date: 20050309
  Transmission Date: 20051028
  Serious: Yes (Hospitalization, Other)
  Sender: FDA-Public Use
  Company Number: PHEH2005US02984

PATIENT
  Age: 75 Year
  Sex: Female

DRUGS (5)
  1. ZOMETA [Suspect]
     Indication: BREAST CANCER METASTATIC
     Dosage: 4 MG Q4W
     Dates: start: 20050107, end: 20050204
  2. GEMZAR [Suspect]
     Indication: BREAST CANCER METASTATIC
     Dosage: 800MG 2WKS ON/OFF
     Dates: start: 20040723, end: 20050225
  3. POTASSIUM CHLORIDE [Concomitant]
     Dosage: 8 MEQ, QD
  4. LEVAQUIN [Suspect]
     Dosage: 250 MG, QD
     Dates: start: 20050307
  5. BUMEX [Suspect]
     Dosage: 2 MG, QD

REACTIONS (15)
  - ACUTE PRERENAL FAILURE [None]
  - ANAEMIA [None]
  - ASTHENIA [None]
  - AZOTAEMIA [None]
  - BLOOD CREATININE INCREASED [None]
  - BLOOD UREA INCREASED [None]
  - DIALYSIS [None]
  - DRUG INTERACTION [None]
  - DYSPNOEA [None]
  - METASTASES TO LIVER [None]
  - NEPHRITIS INTERSTITIAL [None]
  - OSTEOSCLEROSIS [None]
  - PULMONARY MASS [None]
  - RENAL FAILURE ACUTE [None]
  - TUMOUR LYSIS SYNDROME [None]
